FAERS Safety Report 11989923 (Version 2)
Quarter: 2016Q1

REPORT INFORMATION
  Report Type: Spontaneous
  Country: US (occurrence: US)
  Receive Date: 20160202
  Receipt Date: 20160301
  Transmission Date: 20160526
  Serious: No
  Sender: FDA-Public Use
  Company Number: US-PFIZER INC-2016018763

PATIENT
  Age: 48 Year
  Sex: Female

DRUGS (2)
  1. AZITHROMYCIN ANHYDROUS. [Suspect]
     Active Substance: AZITHROMYCIN ANHYDROUS
     Indication: LYMPHADENOPATHY
  2. AZITHROMYCIN ANHYDROUS. [Suspect]
     Active Substance: AZITHROMYCIN ANHYDROUS
     Indication: SINUSITIS
     Dosage: 500 MG, 1X/DAY
     Dates: start: 20160105, end: 20160109

REACTIONS (7)
  - Drug hypersensitivity [Recovered/Resolved]
  - Pruritus [Unknown]
  - Local swelling [Recovered/Resolved]
  - Urticaria [Recovered/Resolved]
  - Ear swelling [Recovered/Resolved]
  - Erythema [Unknown]
  - Swelling face [Recovered/Resolved]

NARRATIVE: CASE EVENT DATE: 20160110
